FAERS Safety Report 6328661-0 (Version None)
Quarter: 2009Q3

REPORT INFORMATION
  Report Type: 
  Country: None (occurrence: None)
  Receive Date: 20090825
  Receipt Date: 20090825
  Transmission Date: 20100115
  Serious: Yes (Hospitalization)
  Sender: FDA-Public Use
  Company Number: None

PATIENT
  Sex: Male
  Weight: 78.0187 kg

DRUGS (4)
  1. CELEBREX [Suspect]
     Indication: ARTHRITIS
     Dosage: 200 MG QD PO
     Route: 048
     Dates: start: 20080101, end: 20090727
  2. SINGULAIR [Concomitant]
  3. LIPITOR [Concomitant]
  4. TESTOSTERONE [Concomitant]

REACTIONS (1)
  - CEREBROVASCULAR ACCIDENT [None]
